FAERS Safety Report 20074169 (Version 1)
Quarter: 2021Q4

REPORT INFORMATION
  Report Type: Spontaneous
  Country: US (occurrence: None)
  Receive Date: 20211113
  Receipt Date: 20211113
  Transmission Date: 20220303
  Serious: Yes (Hospitalization)
  Sender: FDA-Public Use
  Company Number: None

PATIENT
  Sex: Female
  Weight: 73.8 kg

DRUGS (1)
  1. ASPIRIN [Suspect]
     Active Substance: ASPIRIN

REACTIONS (4)
  - Renal colic [None]
  - Tachycardia [None]
  - Nephrolithiasis [None]
  - Renal abscess [None]

NARRATIVE: CASE EVENT DATE: 20210717
